FAERS Safety Report 18818331 (Version 2)
Quarter: 2021Q1

REPORT INFORMATION
  Report Type: Report from Study
  Country: DE (occurrence: DE)
  Receive Date: 20210201
  Receipt Date: 20210208
  Transmission Date: 20210419
  Serious: Yes (Death, Hospitalization)
  Sender: FDA-Public Use
  Company Number: NVSC2020DE302951

PATIENT
  Sex: Female
  Weight: 74 kg

DRUGS (3)
  1. KISQALI [Suspect]
     Active Substance: RIBOCICLIB
     Indication: BREAST CANCER METASTATIC
     Dosage: 600 MG, QD (SCHEMA 21 DAYS INTAKE, 7 DAYS PAUSE)
     Route: 065
     Dates: start: 20200311, end: 20200817
  2. FULVESTRANT. [Suspect]
     Active Substance: FULVESTRANT
     Indication: BREAST CANCER METASTATIC
     Dosage: 250 MG, Q2W (EVERY TWO WEEKS)
     Route: 030
     Dates: start: 20200311
  3. KISQALI [Suspect]
     Active Substance: RIBOCICLIB
     Dosage: 400 MG, QD (EVERY THREE WEEKS)
     Route: 048
     Dates: start: 20200818, end: 20200908

REACTIONS (5)
  - General physical health deterioration [Fatal]
  - Breast neoplasm [Fatal]
  - Metastases to lung [Fatal]
  - Dyspnoea [Fatal]
  - Pneumonia [Recovered/Resolved]

NARRATIVE: CASE EVENT DATE: 20200612
